FAERS Safety Report 10069923 (Version 1)
Quarter: 2014Q2

REPORT INFORMATION
  Report Type: Spontaneous
  Country: US (occurrence: None)
  Receive Date: 20140409
  Receipt Date: 20140409
  Transmission Date: 20141212
  Serious: No
  Sender: FDA-Public Use
  Company Number: None

PATIENT
  Sex: 0

DRUGS (1)
  1. INDOCIN [Suspect]

REACTIONS (5)
  - Dehydration [None]
  - Abdominal pain upper [None]
  - Renal disorder [None]
  - Blood creatinine increased [None]
  - Blood urea increased [None]
